FAERS Safety Report 7362634-4 (Version None)
Quarter: 2011Q1

REPORT INFORMATION
  Report Type: 
  Country: None (occurrence: None)
  Receive Date: 20110320
  Receipt Date: 20110216
  Transmission Date: 20110831
  Serious: Yes (Hospitalization, Other)
  Sender: FDA-Public Use
  Company Number: US-BAYER-201028011NA

PATIENT
  Sex: Female
  Weight: 58.957 kg

DRUGS (2)
  1. YASMIN [Suspect]
     Indication: ACNE
     Dosage: UNK
     Route: 048
     Dates: start: 20050201, end: 20080618
  2. YAZ [Suspect]
     Route: 048
     Dates: start: 20050401, end: 20080615

REACTIONS (5)
  - PAIN [None]
  - DEEP VEIN THROMBOSIS [None]
  - NEPHROTIC SYNDROME [None]
  - PULMONARY EMBOLISM [None]
  - OEDEMA PERIPHERAL [None]
